FAERS Safety Report 10422132 (Version 1)
Quarter: 2014Q3

REPORT INFORMATION
  Report Type: Spontaneous
  Country: US (occurrence: US)
  Receive Date: 20140901
  Receipt Date: 20140901
  Transmission Date: 20150326
  Serious: Yes (Other)
  Sender: FDA-Public Use
  Company Number: US-SA-2014SA073963

PATIENT
  Age: 70 Year
  Sex: Female

DRUGS (2)
  1. MESALAMINE. [Interacting]
     Active Substance: MESALAMINE
     Indication: COLITIS ULCERATIVE
     Dosage: 0.375 MG
     Route: 065
  2. AVAPRO [Suspect]
     Active Substance: IRBESARTAN
     Indication: BLOOD PRESSURE
     Dosage: ABOUT 12 YERAS AGO, DAILY, IF NEEDED
     Route: 065
     Dates: start: 2002

REACTIONS (3)
  - Periorbital contusion [Not Recovered/Not Resolved]
  - Syncope [Not Recovered/Not Resolved]
  - Drug interaction [Unknown]

NARRATIVE: CASE EVENT DATE: 20140523
